FAERS Safety Report 8131075 (Version 2)
Quarter: 2012Q4

REPORT INFORMATION
  Report Type: 
  Country: US (occurrence: US)
  Receive Date: 20110912
  Receipt Date: 20120917
  Transmission Date: 20130627
  Serious: Yes (Other)
  Sender: FDA-Public Use
  Company Number: US-ABBOTT-11P-163-0846948-00

PATIENT
  Age: 3 None
  Sex: Male
  Weight: 25.42 kg

DRUGS (3)
  1. DEPAKOTE SPRINKLES [Suspect]
     Indication: CONVULSION
     Dosage: one in morning and afternoon
  2. DEPAKOTE SPRINKLES [Interacting]
     Route: 048
  3. MIRALAX [Interacting]
     Indication: CONSTIPATION
     Dosage: 17 g daily

REACTIONS (4)
  - Convulsion [Recovered/Resolved]
  - Nightmare [Not Recovered/Not Resolved]
  - Drug interaction [Recovered/Resolved]
  - Constipation [Unknown]
